FAERS Safety Report 6013300-9 (Version None)
Quarter: 2008Q4

REPORT INFORMATION
  Report Type: 
  Country: None (occurrence: None)
  Receive Date: 20081219
  Receipt Date: 20081211
  Transmission Date: 20090506
  Serious: Yes (Hospitalization)
  Sender: FDA-Public Use
  Company Number: IN-WYE-H07237708

PATIENT
  Age: 23 Year
  Sex: Female

DRUGS (6)
  1. PANTOPRAZOLE SODIUM [Suspect]
     Indication: ABDOMINAL PAIN
     Dosage: ^40 MG OD^
     Route: 042
  2. DICLOFENAC SODIUM [Suspect]
     Indication: ABDOMINAL PAIN
     Dosage: UNKNOWN
     Route: 030
  3. PHENYTOIN [Suspect]
     Indication: CONVULSION
     Dosage: 300 MG HS
     Route: 048
  4. DIAZEPAM [Suspect]
     Indication: CONVULSION
     Dosage: UNKNOWN
     Route: 042
  5. DROTAVERINE [Suspect]
     Route: 030
  6. METOCLOPRAMIDE [Suspect]
     Indication: VOMITING
     Dosage: UNKNOWN
     Route: 042

REACTIONS (4)
  - AREFLEXIA [None]
  - HYPOTONIA [None]
  - LOSS OF CONSCIOUSNESS [None]
  - PORPHYRIA ACUTE [None]
